FAERS Safety Report 5190326-9 (Version None)
Quarter: 2006Q4

REPORT INFORMATION
  Report Type: 
  Country: None (occurrence: None)
  Receive Date: 20061222
  Receipt Date: 20060424
  Transmission Date: 20070319
  Serious: No
  Sender: FDA-Public Use
  Company Number: US-AMGEN-US177294

PATIENT

DRUGS (3)
  1. ARANESP [Suspect]
     Indication: DRUG USE FOR UNKNOWN INDICATION
     Dates: start: 20051201
  2. PROCRIT [Concomitant]
  3. NEUPOGEN [Concomitant]

REACTIONS (1)
  - RIB DEFORMITY [None]
